FAERS Safety Report 21152479 (Version 2)
Quarter: 2025Q2

REPORT INFORMATION
  Report Type: Spontaneous
  Country: US (occurrence: US)
  Receive Date: 20220730
  Receipt Date: 20250521
  Transmission Date: 20250717
  Serious: No
  Sender: SANOFI AVENTIS
  Company Number: US-SA-SAC20220725000667

PATIENT
  Sex: Female
  Weight: 72.562 kg

DRUGS (9)
  1. DUPIXENT [Suspect]
     Active Substance: DUPILUMAB
     Indication: Dermatitis atopic
     Dosage: 300 MG, QOW
     Route: 058
     Dates: start: 20180131
  2. ADVIL [Concomitant]
     Active Substance: IBUPROFEN
  3. ALLEGRA ALLERGY [Concomitant]
     Active Substance: FEXOFENADINE HYDROCHLORIDE
  4. ASPIRIN [Concomitant]
     Active Substance: ASPIRIN
  5. MELATONIN [Concomitant]
     Active Substance: MELATONIN
  6. MAGNESIUM [Concomitant]
     Active Substance: MAGNESIUM
  7. OCUVITE ADULT 50+ [ASCORBIC ACID;CUPRIC OXIDE;OMEGA-3 FATTY ACIDS;TOCO [Concomitant]
  8. MERIBIN [Concomitant]
  9. DAILY VITE [COLECALCIFEROL;CYANOCOBALAMIN;ERGOCALCIFEROL;NICOTINAMIDE; [Concomitant]

REACTIONS (1)
  - COVID-19 [Unknown]
